FAERS Safety Report 15667875 (Version 3)
Quarter: 2019Q4

REPORT INFORMATION
  Report Type: Spontaneous
  Country: JP (occurrence: JP)
  Receive Date: 20181128
  Receipt Date: 20191227
  Transmission Date: 20200122
  Serious: Yes (Death, Hospitalization, Other)
  Sender: FDA-Public Use
  Company Number: JP-BIOMARINAP-JP-2018-120921

PATIENT
  Age: 15 Year
  Sex: Male

DRUGS (1)
  1. ALDURAZYME [Suspect]
     Active Substance: LARONIDASE
     Indication: MUCOPOLYSACCHARIDOSIS I
     Dosage: 8.7 MILLIGRAM, QW
     Route: 041
     Dates: start: 20180511

REACTIONS (7)
  - Upper airway obstruction [Fatal]
  - Electrolyte imbalance [Unknown]
  - Asthenia [Fatal]
  - Infection [Unknown]
  - Functional gastrointestinal disorder [Fatal]
  - Multiple organ dysfunction syndrome [Fatal]
  - Disease progression [Fatal]
